FAERS Safety Report 24751926 (Version 1)
Quarter: 2024Q4

REPORT INFORMATION
  Report Type: Spontaneous
  Country: US (occurrence: US)
  Receive Date: 20241219
  Receipt Date: 20241219
  Transmission Date: 20250115
  Serious: No
  Sender: ROCHE
  Company Number: US-ROCHE-10000159555

PATIENT

DRUGS (2)
  1. XOLAIR [Suspect]
     Active Substance: OMALIZUMAB
     Indication: Product used for unknown indication
     Dosage: PREFILLED SYRINGE (PFS) 150MG/ML NDC 50242-215-01
     Route: 065
  2. XOLAIR [Suspect]
     Active Substance: OMALIZUMAB

REACTIONS (2)
  - Intercepted product storage error [Unknown]
  - No adverse event [Unknown]

NARRATIVE: CASE EVENT DATE: 20241211
